FAERS Safety Report 24763493 (Version 2)
Quarter: 2025Q1

REPORT INFORMATION
  Report Type: Spontaneous
  Country: US (occurrence: US)
  Receive Date: 20241223
  Receipt Date: 20250108
  Transmission Date: 20250408
  Serious: No
  Sender: ROCHE
  Company Number: US-ROCHE-10000162228

PATIENT
  Age: 54 Year
  Sex: Female

DRUGS (1)
  1. OCREVUS [Suspect]
     Active Substance: OCRELIZUMAB
     Indication: Multiple sclerosis
     Dosage: 2ND HALF DOSE OF OCREVUS 300MG IV ON 06-DEC-2024?2 DOSES 2 WEEKS APART - 2 INFUSION
     Route: 042
     Dates: start: 20241122

REACTIONS (1)
  - Dizziness [Not Recovered/Not Resolved]

NARRATIVE: CASE EVENT DATE: 20241206
